FAERS Safety Report 4640648-2 (Version None)
Quarter: 2005Q2

REPORT INFORMATION
  Report Type: 
  Country: None (occurrence: None)
  Receive Date: 20050419
  Receipt Date: 20050411
  Transmission Date: 20051028
  Serious: Yes (Life-Threatening)
  Sender: FDA-Public Use
  Company Number: CIP05000847

PATIENT

DRUGS (1)
  1. ACTONEL [Suspect]
     Dosage: ORAL

REACTIONS (1)
  - ANAPHYLACTIC SHOCK [None]
